FAERS Safety Report 4882138-8 (Version None)
Quarter: 2006Q1

REPORT INFORMATION
  Report Type: 
  Country: None (occurrence: None)
  Receive Date: 20060112
  Receipt Date: 20060103
  Transmission Date: 20060701
  Serious: Yes (Other)
  Sender: FDA-Public Use
  Company Number: 2006002057

PATIENT
  Age: 71 Year
  Sex: Male

DRUGS (3)
  1. LYRICA [Suspect]
     Indication: NEURALGIA
     Dosage: 600 MG (300 MG, 2 IN 1 D), ORAL
     Route: 048
     Dates: start: 20050407
  2. LISINOPRIL [Concomitant]
  3. ZOLPIDEM TARTRATE [Concomitant]

REACTIONS (6)
  - AGGRESSION [None]
  - AGITATION [None]
  - DEPENDENCE [None]
  - DRUG WITHDRAWAL SYNDROME [None]
  - PARAESTHESIA [None]
  - SLEEP DISORDER [None]
